FAERS Safety Report 21325537 (Version 3)
Quarter: 2024Q1

REPORT INFORMATION
  Report Type: Report from Study
  Country: FR (occurrence: FR)
  Receive Date: 20220912
  Receipt Date: 20240319
  Transmission Date: 20240410
  Serious: No
  Sender: FDA-Public Use
  Company Number: FR-TAKEDA-2022TUS062929

PATIENT
  Age: 61 Year
  Sex: Male

DRUGS (14)
  1. TEDUGLUTIDE [Suspect]
     Active Substance: TEDUGLUTIDE
     Indication: Short-bowel syndrome
     Dosage: 2 MILLIGRAM, 1/WEEK
     Route: 042
     Dates: start: 20180719, end: 20191217
  2. TEDUGLUTIDE [Suspect]
     Active Substance: TEDUGLUTIDE
     Indication: Short-bowel syndrome
     Dosage: 2 MILLIGRAM, 1/WEEK
     Route: 042
     Dates: start: 20180719, end: 20191217
  3. TEDUGLUTIDE [Suspect]
     Active Substance: TEDUGLUTIDE
     Indication: Short-bowel syndrome
     Dosage: 2 MILLIGRAM, 1/WEEK
     Route: 042
     Dates: start: 20180719, end: 20191217
  4. TEDUGLUTIDE [Suspect]
     Active Substance: TEDUGLUTIDE
     Indication: Short-bowel syndrome
     Dosage: 2 MILLIGRAM, 1/WEEK
     Route: 042
     Dates: start: 20180719, end: 20191217
  5. TEDUGLUTIDE [Suspect]
     Active Substance: TEDUGLUTIDE
     Dosage: 3.4 MILLIGRAM, QD
     Route: 042
     Dates: start: 20191218
  6. TEDUGLUTIDE [Suspect]
     Active Substance: TEDUGLUTIDE
     Dosage: 3.4 MILLIGRAM, QD
     Route: 042
     Dates: start: 20191218
  7. TEDUGLUTIDE [Suspect]
     Active Substance: TEDUGLUTIDE
     Dosage: 3.4 MILLIGRAM, QD
     Route: 042
     Dates: start: 20191218
  8. TEDUGLUTIDE [Suspect]
     Active Substance: TEDUGLUTIDE
     Dosage: 3.4 MILLIGRAM, QD
     Route: 042
     Dates: start: 20191218
  9. ESOMEPRAZOLE [Concomitant]
     Active Substance: ESOMEPRAZOLE
     Indication: Duodenal polyp
     Dosage: 20 MILLIGRAM, QD
     Route: 048
     Dates: start: 20220301, end: 20220329
  10. ESOMEPRAZOLE [Concomitant]
     Active Substance: ESOMEPRAZOLE
     Indication: Postoperative care
     Dosage: 40 MILLIGRAM, QD
     Route: 048
     Dates: start: 20220225, end: 20220228
  11. ZINC GLUCONATE [Concomitant]
     Active Substance: ZINC GLUCONATE
     Indication: Zinc deficiency
     Dosage: 15 MILLIGRAM, QD
     Route: 048
     Dates: start: 20210923
  12. Spasmag [Concomitant]
     Indication: Prophylaxis
     Dosage: 1 DOSAGE FORM, BID
     Route: 048
     Dates: start: 20210922
  13. MAGNESIUM CARBONATE [Concomitant]
     Active Substance: MAGNESIUM CARBONATE
     Indication: Prophylaxis
     Dosage: 100 MILLIGRAM, TID
     Route: 048
     Dates: start: 20210910
  14. IMODIUM [Concomitant]
     Active Substance: LOPERAMIDE HYDROCHLORIDE
     Indication: Prophylaxis
     Dosage: 2 MILLIGRAM
     Route: 048
     Dates: start: 20190423

REACTIONS (2)
  - Duodenal polyp [Recovered/Resolved]
  - Hypophosphataemia [Not Recovered/Not Resolved]

NARRATIVE: CASE EVENT DATE: 20210906
